APPROVED DRUG PRODUCT: ARISTOGEL
Active Ingredient: TRIAMCINOLONE ACETONIDE
Strength: 0.1%
Dosage Form/Route: GEL;TOPICAL
Application: A083380 | Product #001
Applicant: ASTELLAS PHARMA US INC
Approved: Approved Prior to Jan 1, 1982 | RLD: Yes | RS: No | Type: DISCN